FAERS Safety Report 7421652-8 (Version None)
Quarter: 2011Q2

REPORT INFORMATION
  Report Type: 
  Country: None (occurrence: None)
  Receive Date: 20110418
  Receipt Date: 20110324
  Transmission Date: 20111010
  Serious: No
  Sender: FDA-Public Use
  Company Number: US-B.I. PHARMACEUTICALS,INC./RIDGEFIELD-2011-BP-03349BP

PATIENT
  Sex: Male

DRUGS (4)
  1. LASIX [Concomitant]
     Indication: CARDIAC FAILURE CONGESTIVE
     Route: 048
  2. PRADAXA [Suspect]
     Indication: ATRIAL FIBRILLATION
     Route: 048
     Dates: start: 20101101
  3. HYPERTENSION MEDICATION [Concomitant]
     Indication: HYPERTENSION
     Route: 048
  4. CARDIAC MEDICATION [Concomitant]
     Indication: CARDIAC FAILURE CONGESTIVE
     Route: 048

REACTIONS (6)
  - FEELING HOT [None]
  - OEDEMA PERIPHERAL [None]
  - HAEMORRHAGE SUBCUTANEOUS [None]
  - PAIN IN EXTREMITY [None]
  - JOINT SWELLING [None]
  - ERYTHEMA [None]
